FAERS Safety Report 19277436 (Version 1)
Quarter: 2021Q2

REPORT INFORMATION
  Report Type: Spontaneous
  Country: GB (occurrence: GB)
  Receive Date: 20210520
  Receipt Date: 20210520
  Transmission Date: 20210717
  Serious: Yes (Hospitalization, Other)
  Sender: FDA-Public Use
  Company Number: GB-TEVA-2021-GB-1906762

PATIENT
  Age: 50 Year
  Sex: Female

DRUGS (3)
  1. LUGOL [Suspect]
     Active Substance: IODINE\POTASSIUM IODIDE
     Indication: THYROTOXIC CRISIS
     Route: 065
  2. PROPYLTHIOURACIL. [Suspect]
     Active Substance: PROPYLTHIOURACIL
     Dosage: 400 MILLIGRAM DAILY; IN DIVIDED DOSES; MAXIMUM DOSE
     Route: 065
  3. PROPYLTHIOURACIL. [Suspect]
     Active Substance: PROPYLTHIOURACIL
     Indication: BASEDOW^S DISEASE
     Dosage: INITIAL DOSE NOT STATED
     Route: 065
     Dates: start: 202004

REACTIONS (2)
  - Anxiety [Unknown]
  - Drug ineffective [Unknown]
